FAERS Safety Report 6700413-9 (Version None)
Quarter: 2010Q2

REPORT INFORMATION
  Report Type: 
  Country: None (occurrence: None)
  Receive Date: 20100428
  Receipt Date: 20100419
  Transmission Date: 20101027
  Serious: Yes (Other)
  Sender: FDA-Public Use
  Company Number: US-ROCHE-699249

PATIENT
  Sex: Female

DRUGS (10)
  1. BEVACIZUMAB [Suspect]
     Indication: BREAST CANCER
     Dosage: LAST DOSE PRIOR TO SAE: 11 MARCH 2010. DOSE, FORM AND FREQUENCY NOT PROVIDED.
     Route: 065
     Dates: start: 20100218, end: 20100401
  2. CYCLOPHOSPHAMIDE [Suspect]
     Indication: BREAST CANCER
     Dosage: LAST DOSE PRIOR TO SAE: 01 APRIL 2010. DOSE, FORM AND FREQUENCY NOT PROVIDED.
     Route: 065
     Dates: start: 20100218
  3. DOCETAXEL [Suspect]
     Indication: BREAST CANCER
     Dosage: LAST DOSE PRIOR TO SAE; 01 MARCH 2010.  DOSE, FORM AND FREQUENCY NOT PROVIDED.
     Route: 065
     Dates: start: 20100218
  4. ACETAMINOPHEN [Concomitant]
  5. ASCORBIC ACID [Concomitant]
  6. BISACODYL [Concomitant]
  7. CALCIUM [Concomitant]
  8. ACETAMINOPHEN WITH DIPHENHYDRAMINE [Concomitant]
     Dosage: DIPHENHYDRAMINE-ACETAMINOPHEN.
  9. GLUCOSAMINE SULFATE/CHONDROITIN [Concomitant]
     Dosage: GLUCOSAMINE-CHONDROITIN
  10. HYDROCHLOROTHIAZIDE [Concomitant]

REACTIONS (1)
  - HYPOAESTHESIA [None]
